FAERS Safety Report 10038339 (Version 2)
Quarter: 2014Q2

REPORT INFORMATION
  Report Type: Spontaneous
  Country: US (occurrence: US)
  Receive Date: 20140326
  Receipt Date: 20140502
  Transmission Date: 20141212
  Serious: Yes (Other)
  Sender: FDA-Public Use
  Company Number: US-JNJFOC-20140308146

PATIENT
  Sex: Female

DRUGS (9)
  1. INVEGA SUSTENNA [Suspect]
     Indication: MANIA
     Route: 030
  2. INVEGA SUSTENNA [Suspect]
     Indication: MANIA
     Route: 030
  3. INVEGA SUSTENNA [Suspect]
     Indication: MANIA
     Route: 030
  4. INVEGA SUSTENNA [Suspect]
     Indication: BIPOLAR DISORDER
     Route: 030
  5. INVEGA SUSTENNA [Suspect]
     Indication: BIPOLAR DISORDER
     Route: 030
  6. INVEGA SUSTENNA [Suspect]
     Indication: BIPOLAR DISORDER
     Route: 030
  7. INVEGA [Suspect]
     Indication: MANIA
     Route: 048
  8. INVEGA [Suspect]
     Indication: BIPOLAR DISORDER
     Route: 048
  9. VENLAFAXINE [Concomitant]
     Route: 065
     Dates: start: 2012

REACTIONS (3)
  - Blood prolactin increased [Unknown]
  - Weight increased [Unknown]
  - Galactorrhoea [Unknown]
